FAERS Safety Report 20244649 (Version 1)
Quarter: 2021Q4

REPORT INFORMATION
  Report Type: Other
  Country: CN (occurrence: None)
  Receive Date: 20211229
  Receipt Date: 20211229
  Transmission Date: 20220303
  Serious: Yes (Other)
  Sender: FDA-Public Use
  Company Number: CN-ROCHE-2984462

PATIENT
  Age: 50 Year
  Sex: Female

DRUGS (17)
  1. HERCEPTIN [Suspect]
     Active Substance: TRASTUZUMAB
     Indication: HER2 positive breast cancer
     Route: 065
     Dates: start: 2011
  2. HERCEPTIN [Suspect]
     Active Substance: TRASTUZUMAB
     Route: 065
     Dates: start: 20200106
  3. HERCEPTIN [Suspect]
     Active Substance: TRASTUZUMAB
     Route: 065
     Dates: start: 2017
  4. BEVACIZUMAB [Suspect]
     Active Substance: BEVACIZUMAB
     Indication: HER2 positive breast cancer
     Route: 033
     Dates: start: 2020
  5. CISPLATIN [Suspect]
     Active Substance: CISPLATIN
     Indication: HER2 positive breast cancer
     Route: 065
     Dates: start: 2011
  6. CISPLATIN [Suspect]
     Active Substance: CISPLATIN
     Route: 034
     Dates: start: 2020
  7. ZOLEDRONIC ACID [Suspect]
     Active Substance: ZOLEDRONIC ACID
     Indication: Metastases to bone
     Route: 065
     Dates: start: 2017
  8. PYROTINIB [Concomitant]
     Active Substance: PYROTINIB
     Indication: HER2 positive breast cancer
     Dates: start: 20200116
  9. PYROTINIB [Concomitant]
     Active Substance: PYROTINIB
     Route: 048
     Dates: start: 20200327
  10. PYROTINIB [Concomitant]
     Active Substance: PYROTINIB
     Route: 048
     Dates: start: 20201013
  11. PYROTINIB [Concomitant]
     Active Substance: PYROTINIB
     Route: 048
     Dates: start: 2020
  12. GEMCITABINE [Concomitant]
     Active Substance: GEMCITABINE
     Indication: HER2 positive breast cancer
     Dates: start: 20200116
  13. DOCETAXEL [Concomitant]
     Active Substance: DOCETAXEL
     Indication: HER2 positive breast cancer
     Dates: start: 2017, end: 2017
  14. DOCETAXEL [Concomitant]
     Active Substance: DOCETAXEL
     Route: 034
     Dates: start: 20191120
  15. ENDOSTATIN [Concomitant]
     Active Substance: ENDOSTATIN
     Indication: HER2 positive breast cancer
     Route: 034
     Dates: start: 20191120
  16. TOREMIFENE CITRATE [Concomitant]
     Active Substance: TOREMIFENE CITRATE
     Route: 048
     Dates: start: 201108, end: 201606
  17. TAMOXIFEN [Concomitant]
     Active Substance: TAMOXIFEN
     Route: 048
     Dates: start: 201606, end: 201703

REACTIONS (5)
  - Myelosuppression [Recovering/Resolving]
  - Paronychia [Recovering/Resolving]
  - Disease progression [Unknown]
  - Drug ineffective [Unknown]
  - Off label use [Unknown]

NARRATIVE: CASE EVENT DATE: 20170228
